FAERS Safety Report 5040595-0 (Version None)
Quarter: 2006Q2

REPORT INFORMATION
  Report Type: 
  Country: None (occurrence: None)
  Receive Date: 20060627
  Receipt Date: 20060627
  Transmission Date: 20061013
  Serious: Yes (Other)
  Sender: FDA-Public Use
  Company Number: None

PATIENT
  Age: 53 Year
  Sex: Female
  Weight: 72.5755 kg

DRUGS (1)
  1. SALINE SOLUTION 12 FL OZ DUANE READE [Suspect]
     Indication: EYE IRRIGATION
     Dosage: ONE SQUIRT ON EACH ONCE OTHER
     Route: 050
     Dates: start: 20060615, end: 20060615

REACTIONS (5)
  - DERMATITIS ALLERGIC [None]
  - ERYTHEMA [None]
  - EYE PAIN [None]
  - PHARMACEUTICAL PRODUCT COMPLAINT [None]
  - URTICARIA [None]
